FAERS Safety Report 24989612 (Version 3)
Quarter: 2025Q1

REPORT INFORMATION
  Report Type: Spontaneous
  Country: PL (occurrence: PL)
  Receive Date: 20250220
  Receipt Date: 20250325
  Transmission Date: 20250409
  Serious: Yes (Life-Threatening, Hospitalization, Other)
  Sender: AUROBINDO
  Company Number: PL-RBHC-20-25-POL-RB-0001186

PATIENT
  Age: 23 Year
  Sex: Female

DRUGS (14)
  1. IBUPROFEN [Suspect]
     Active Substance: IBUPROFEN
     Indication: Lymph node pain
     Route: 065
  2. IBUPROFEN [Suspect]
     Active Substance: IBUPROFEN
     Indication: Lymphadenopathy
  3. IBUPROFEN [Suspect]
     Active Substance: IBUPROFEN
     Indication: Influenza like illness
  4. IBUPROFEN [Suspect]
     Active Substance: IBUPROFEN
     Indication: Gastroenteritis
  5. ACETAMINOPHEN [Suspect]
     Active Substance: ACETAMINOPHEN
     Indication: Influenza like illness
     Route: 065
  6. ACETAMINOPHEN [Suspect]
     Active Substance: ACETAMINOPHEN
     Indication: Gastroenteritis
  7. ACETAMINOPHEN [Suspect]
     Active Substance: ACETAMINOPHEN
     Indication: Lymphadenopathy
  8. ACETAMINOPHEN [Suspect]
     Active Substance: ACETAMINOPHEN
     Indication: Lymph node pain
  9. ACETAMINOPHEN [Suspect]
     Active Substance: ACETAMINOPHEN
     Indication: Product used for unknown indication
     Route: 065
  10. CLARITHROMYCIN [Suspect]
     Active Substance: CLARITHROMYCIN
     Indication: Lymphadenopathy
     Route: 065
  11. CLARITHROMYCIN [Suspect]
     Active Substance: CLARITHROMYCIN
     Indication: Lymph node pain
  12. CLARITHROMYCIN [Suspect]
     Active Substance: CLARITHROMYCIN
     Indication: Influenza like illness
  13. CLARITHROMYCIN [Suspect]
     Active Substance: CLARITHROMYCIN
     Indication: Gastroenteritis
  14. MESALAMINE [Concomitant]
     Active Substance: MESALAMINE
     Indication: Gastrointestinal haemorrhage
     Route: 065

REACTIONS (35)
  - Encephalopathy [Recovering/Resolving]
  - Multiple organ dysfunction syndrome [Recovering/Resolving]
  - Coma [Recovering/Resolving]
  - Lymphadenopathy [Recovering/Resolving]
  - Loss of consciousness [Recovering/Resolving]
  - Anaemia [Recovering/Resolving]
  - Coagulopathy [Recovering/Resolving]
  - Acute hepatic failure [Recovered/Resolved]
  - Dermatitis exfoliative generalised [Recovered/Resolved]
  - Pneumonia [Recovered/Resolved]
  - Transfusion-related acute lung injury [Recovered/Resolved]
  - Respiratory failure [Recovered/Resolved]
  - Petechiae [Recovered/Resolved]
  - Rash erythematous [Recovered/Resolved]
  - Skin exfoliation [Recovered/Resolved]
  - Purpura [Recovered/Resolved]
  - Rash macular [Recovered/Resolved]
  - Dermatitis [Recovered/Resolved]
  - Oral disorder [Recovered/Resolved]
  - Pyrexia [Recovered/Resolved]
  - Angular cheilitis [Recovered/Resolved]
  - Extravasation [Recovered/Resolved]
  - Coating in mouth [Recovered/Resolved]
  - Rash [Recovered/Resolved]
  - Skin lesion [Recovered/Resolved]
  - Pleural effusion [Recovered/Resolved]
  - Pulmonary oedema [Recovered/Resolved]
  - Hypoxia [Recovered/Resolved]
  - Haemorrhagic diathesis [Recovered/Resolved]
  - Yellow skin [Recovered/Resolved]
  - Jaundice [Recovered/Resolved]
  - Hepatosplenomegaly [Recovered/Resolved]
  - Generalised oedema [Recovered/Resolved]
  - Ocular icterus [Recovered/Resolved]
  - Liver injury [Recovered/Resolved]
